FAERS Safety Report 7817157-2 (Version None)
Quarter: 2011Q4

REPORT INFORMATION
  Report Type: 
  Country: None (occurrence: None)
  Receive Date: 20111017
  Receipt Date: 20111017
  Transmission Date: 20120403
  Serious: Yes (Death)
  Sender: FDA-Public Use
  Company Number: None

PATIENT
  Age: 87 Year
  Sex: Female
  Weight: 45.812 kg

DRUGS (1)
  1. DIAMOX SRC [Suspect]
     Indication: CARBON DIOXIDE INCREASED
     Dosage: 250 MG
     Dates: start: 20110921, end: 20110921

REACTIONS (1)
  - DRUG HYPERSENSITIVITY [None]
